FAERS Safety Report 11036799 (Version 1)
Quarter: 2015Q2

REPORT INFORMATION
  Report Type: Spontaneous
  Country: US (occurrence: None)
  Receive Date: 20150415
  Receipt Date: 20150415
  Transmission Date: 20150821
  Serious: Yes (Death, Life-Threatening, Hospitalization, Disabling)
  Sender: FDA-Public Use
  Company Number: None

PATIENT
  Age: 72 Year
  Sex: Female
  Weight: 49.9 kg

DRUGS (1)
  1. ABILIFY [Suspect]
     Active Substance: ARIPIPRAZOLE
     Indication: DRUG ADMINISTRATION ERROR
     Dosage: ADULT DOSAGE, TAKEN BY MOUTH
     Route: 048
     Dates: start: 20140811, end: 20140903

REACTIONS (3)
  - Muscle tightness [None]
  - Catatonia [None]
  - Paralysis [None]

NARRATIVE: CASE EVENT DATE: 20140831
